FAERS Safety Report 9168475 (Version 1)
Quarter: 2013Q1

REPORT INFORMATION
  Report Type: Spontaneous
  Country: CA (occurrence: CA)
  Receive Date: 20130318
  Receipt Date: 20130318
  Transmission Date: 20140127
  Serious: Yes (Disabling)
  Sender: FDA-Public Use
  Company Number: CA-ASTRAZENECA-2012SE92533

PATIENT
  Age: 89 Year
  Sex: Female

DRUGS (10)
  1. CRESTOR [Suspect]
     Indication: BLOOD CHOLESTEROL
     Route: 048
  2. CRESTOR [Suspect]
     Indication: BLOOD CHOLESTEROL
     Route: 048
     Dates: start: 201210, end: 201211
  3. PLAVIX [Concomitant]
     Route: 048
  4. HIGH BLOOD PRESSURE MEDICATION [Concomitant]
     Route: 048
  5. WATER PILLS [Concomitant]
  6. VITAMIN D [Concomitant]
  7. VITAMIN C [Concomitant]
  8. OMEGA 3 [Concomitant]
  9. CALCIUM SUPPLEMENT [Concomitant]
  10. MAGNESIUM SUPPLEMENT [Concomitant]

REACTIONS (5)
  - Pain in extremity [Not Recovered/Not Resolved]
  - Arthralgia [Not Recovered/Not Resolved]
  - Myalgia [Unknown]
  - Muscle spasms [Unknown]
  - Abdominal discomfort [Unknown]
